FAERS Safety Report 6275695-0 (Version None)
Quarter: 2009Q3

REPORT INFORMATION
  Report Type: 
  Country: None (occurrence: None)
  Receive Date: 20090721
  Receipt Date: 20090708
  Transmission Date: 20100115
  Serious: Yes (Hospitalization)
  Sender: FDA-Public Use
  Company Number: PHHY2009MX27325

PATIENT
  Age: 57 Year
  Sex: Male

DRUGS (2)
  1. DIOVAN [Suspect]
     Indication: HYPERTENSION
     Dosage: 0.5 TABLET (320MG) PER DAY
     Route: 048
     Dates: start: 20060601, end: 20090607
  2. HYGROTON [Concomitant]
     Indication: DIURETIC THERAPY

REACTIONS (3)
  - HERNIA REPAIR [None]
  - HIATUS HERNIA [None]
  - HYPERTENSION [None]
